FAERS Safety Report 20565851 (Version 1)
Quarter: 2022Q1

REPORT INFORMATION
  Report Type: Spontaneous
  Country: US (occurrence: None)
  Receive Date: 20220307
  Receipt Date: 20220307
  Transmission Date: 20220423
  Serious: Yes (Disabling)
  Sender: FDA-Public Use
  Company Number: None

PATIENT
  Age: 68 Year
  Sex: Female
  Weight: 68.85 kg

DRUGS (6)
  1. ACYCLOVIR [Suspect]
     Active Substance: ACYCLOVIR
     Indication: Herpes simplex
     Dosage: OTHER QUANTITY : 1 TABLET(S);?OTHER FREQUENCY : FIVE TIMES DAY;?
     Route: 048
     Dates: start: 20220302, end: 20220305
  2. BYSTOLIC [Concomitant]
     Active Substance: NEBIVOLOL HYDROCHLORIDE
  3. VITAMINS [Concomitant]
     Active Substance: VITAMINS
  4. COQ10 [Concomitant]
  5. CALCIUM [Concomitant]
     Active Substance: CALCIUM
  6. HERBALS\TURMERIC [Concomitant]
     Active Substance: HERBALS\TURMERIC

REACTIONS (4)
  - Drug ineffective [None]
  - Suspected product quality issue [None]
  - Pain [None]
  - Malaise [None]

NARRATIVE: CASE EVENT DATE: 20220302
